FAERS Safety Report 24104955 (Version 1)
Quarter: 2024Q3

REPORT INFORMATION
  Report Type: Spontaneous
  Country: GB (occurrence: GB)
  Receive Date: 20240717
  Receipt Date: 20240717
  Transmission Date: 20241016
  Serious: Yes (Other)
  Sender: SANDOZ
  Company Number: GB-MHRA-TPP44986497C949673YC1720799610125

PATIENT
  Age: 60 Year
  Sex: Male
  Weight: 93 kg

DRUGS (10)
  1. BEMPEDOIC ACID [Suspect]
     Active Substance: BEMPEDOIC ACID
     Indication: Product used for unknown indication
     Dosage: 180 MG
     Route: 065
     Dates: start: 20240712
  2. EZETIMIBE [Suspect]
     Active Substance: EZETIMIBE
     Indication: Product used for unknown indication
     Dosage: 10 MG
     Route: 065
  3. CHLORAMPHENICOL [Concomitant]
     Active Substance: CHLORAMPHENICOL
     Indication: Product used for unknown indication
     Dosage: 1 DF, Q6H, APPLY 4 TIMES/DAY
     Route: 065
     Dates: start: 20240621, end: 20240626
  4. HYDROCHLOROTHIAZIDE\LOSARTAN POTASSIUM [Concomitant]
     Active Substance: HYDROCHLOROTHIAZIDE\LOSARTAN POTASSIUM
     Indication: Product used for unknown indication
     Dosage: 1DF, QD, 1 TABLET ONCE DAILY
     Route: 065
     Dates: start: 20240116
  5. BECLOMETHASONE\FORMOTEROL [Concomitant]
     Active Substance: BECLOMETHASONE\FORMOTEROL
     Indication: Product used for unknown indication
     Dosage: 2 DF, Q12H, MAINTENANCE, 2 PUFFS TWICE A DAY. FOR IMMEDIATE...
     Route: 065
     Dates: start: 20240116
  6. BEMPEDOIC ACID\EZETIMIBE [Concomitant]
     Active Substance: BEMPEDOIC ACID\EZETIMIBE
     Indication: Product used for unknown indication
     Dosage: 1DF, QDTAKE ONE DAILY
     Route: 065
     Dates: start: 20240116
  7. ALBUTEROL [Concomitant]
     Active Substance: ALBUTEROL
     Indication: Product used for unknown indication
     Dosage: 2 DF, INHALE 2 DOSES AS NEEDED
     Route: 055
     Dates: start: 20240116
  8. SILDENAFIL [Concomitant]
     Active Substance: SILDENAFIL
     Indication: Product used for unknown indication
     Dosage: 1 DF, 1 TABLET 60 MINUTES BEFORE EFFECT IS NEEDED. MI...
     Route: 065
     Dates: start: 20240116
  9. SPIRIVA [Concomitant]
     Active Substance: TIOTROPIUM BROMIDE MONOHYDRATE
     Indication: Product used for unknown indication
     Dosage: 2 DF, QD, TAKE TWO PUFFS ONCE DAILY
     Route: 065
     Dates: start: 20240116
  10. TAMSULOSIN HYDROCHLORIDE [Concomitant]
     Active Substance: TAMSULOSIN HYDROCHLORIDE
     Indication: Product used for unknown indication
     Dosage: 1 DF, QD, TAKE ONE DAILY
     Route: 065
     Dates: start: 20240621

REACTIONS (1)
  - Retrograde ejaculation [Recovered/Resolved]
